FAERS Safety Report 10932436 (Version 1)
Quarter: 2015Q1

REPORT INFORMATION
  Report Type: Spontaneous
  Country: US (occurrence: None)
  Receive Date: 20150319
  Receipt Date: 20150319
  Transmission Date: 20150721
  Serious: Yes (Hospitalization)
  Sender: FDA-Public Use
  Company Number: None

PATIENT
  Age: 40 Year
  Sex: Female

DRUGS (2)
  1. CANAGLIFLOZIN 300 MG JANSSEN [Suspect]
     Active Substance: CANAGLIFLOZIN
     Indication: BLOOD GLUCOSE INCREASED
     Route: 048
     Dates: start: 20140301, end: 20150317
  2. RAPID ACTING INSULIN VIA INSULIN PUMP [Concomitant]

REACTIONS (6)
  - Off label use [None]
  - Myalgia [None]
  - Pneumonia [None]
  - Diabetic ketoacidosis [None]
  - Nausea [None]
  - Bronchitis [None]

NARRATIVE: CASE EVENT DATE: 20150318
